FAERS Safety Report 23689089 (Version 1)
Quarter: 2024Q1

REPORT INFORMATION
  Report Type: Report from Study
  Country: US (occurrence: US)
  Receive Date: 20240330
  Receipt Date: 20240330
  Transmission Date: 20240410
  Serious: Yes (Other)
  Sender: FDA-Public Use
  Company Number: US-ABBVIE-5692583

PATIENT
  Age: 73 Year
  Sex: Male
  Weight: 86.636 kg

DRUGS (6)
  1. HUMIRA [Suspect]
     Active Substance: ADALIMUMAB
     Indication: Rheumatoid arthritis
     Dosage: STRENGTH: 40 MG?CITRATE FREE
     Route: 058
     Dates: start: 20221117
  2. HUMIRA [Suspect]
     Active Substance: ADALIMUMAB
     Indication: Psoriatic arthropathy
  3. METHOTREXATE [Suspect]
     Active Substance: METHOTREXATE
     Indication: Product used for unknown indication
     Route: 065
     Dates: end: 202303
  4. LEFLUNOMIDE [Suspect]
     Active Substance: LEFLUNOMIDE
     Indication: Product used for unknown indication
     Route: 065
     Dates: start: 2023
  5. DULOXETINE [Concomitant]
     Active Substance: DULOXETINE
     Indication: Product used for unknown indication
  6. CELEBREX [Concomitant]
     Active Substance: CELECOXIB
     Indication: Product used for unknown indication

REACTIONS (12)
  - Rotator cuff syndrome [Recovering/Resolving]
  - Platelet count decreased [Recovered/Resolved]
  - Psoriatic arthropathy [Not Recovered/Not Resolved]
  - Arthritis [Unknown]
  - Hepatic enzyme increased [Recovered/Resolved]
  - Musculoskeletal stiffness [Not Recovered/Not Resolved]
  - Rash macular [Not Recovered/Not Resolved]
  - Therapeutic product effect incomplete [Not Recovered/Not Resolved]
  - Rotator cuff syndrome [Recovering/Resolving]
  - Pain [Unknown]
  - Joint dislocation [Recovering/Resolving]
  - Joint dislocation [Unknown]

NARRATIVE: CASE EVENT DATE: 20230201
